FAERS Safety Report 9446002 (Version 1)
Quarter: 2013Q3

REPORT INFORMATION
  Report Type: Spontaneous
  Country: GB (occurrence: GB)
  Receive Date: 20130807
  Receipt Date: 20130807
  Transmission Date: 20140515
  Serious: Yes (Hospitalization)
  Sender: FDA-Public Use
  Company Number: GB-BAUSCH-BL-2013-004435

PATIENT
  Age: 5 Year
  Sex: Female
  Weight: 23 kg

DRUGS (4)
  1. PREDNISOLONE [Suspect]
     Indication: PRODUCT USED FOR UNKNOWN INDICATION
     Dosage: 1 1/DAYS
     Route: 048
     Dates: start: 20130625
  2. PREDNISOLONE [Suspect]
     Dosage: 1 1/DAYS
     Route: 048
  3. PREDNISOLONE [Suspect]
     Dosage: 1 1/DAYS
     Route: 048
  4. METHOTREXATE [Concomitant]
     Indication: JUVENILE IDIOPATHIC ARTHRITIS
     Dosage: 1 / WEEKS
     Route: 065
     Dates: start: 201305

REACTIONS (2)
  - Abdominal pain [Recovered/Resolved with Sequelae]
  - Headache [Recovered/Resolved with Sequelae]
